FAERS Safety Report 5847451-6 (Version None)
Quarter: 2008Q3

REPORT INFORMATION
  Report Type: 
  Country: None (occurrence: None)
  Receive Date: 20080813
  Receipt Date: 20080731
  Transmission Date: 20090109
  Serious: No
  Sender: FDA-Public Use
  Company Number: 2008-181467-NL

PATIENT
  Age: 79 Year
  Sex: Female

DRUGS (1)
  1. MIRTAZAPINE [Suspect]
     Indication: DEPRESSION
     Dosage: 15 MG QD , ORAL
     Route: 048

REACTIONS (4)
  - AGGRESSION [None]
  - ANGER [None]
  - INTENTIONAL SELF-INJURY [None]
  - IRRITABILITY [None]
